FAERS Safety Report 20058793 (Version 1)
Quarter: 2021Q4

REPORT INFORMATION
  Report Type: Spontaneous
  Country: US (occurrence: None)
  Receive Date: 20211111
  Receipt Date: 20211111
  Transmission Date: 20220303
  Serious: Yes (Other)
  Sender: FDA-Public Use
  Company Number: None

PATIENT
  Age: 59 Year
  Sex: Female
  Weight: 75.6 kg

DRUGS (1)
  1. FEMRING [Suspect]
     Active Substance: ESTRADIOL ACETATE
     Indication: Hormone replacement therapy
     Dosage: OTHER QUANTITY : 1 RING;?OTHER FREQUENCY : EVERY 3 MONTHS;?
     Route: 067
     Dates: start: 20210715, end: 20211020

REACTIONS (3)
  - Alopecia [None]
  - Product formulation issue [None]
  - Manufacturing production issue [None]

NARRATIVE: CASE EVENT DATE: 20210715
